FAERS Safety Report 21024291 (Version 3)
Quarter: 2022Q3

REPORT INFORMATION
  Report Type: Report from Study
  Country: US (occurrence: US)
  Receive Date: 20220629
  Receipt Date: 20220811
  Transmission Date: 20221027
  Serious: No
  Sender: FDA-Public Use
  Company Number: US-GILEAD-2022-0587630

PATIENT
  Age: 36 Year
  Sex: Female

DRUGS (2)
  1. AMBRISENTAN [Suspect]
     Active Substance: AMBRISENTAN
     Indication: Pulmonary hypertension
     Dosage: 5 MG, QD
     Route: 065
     Dates: start: 20210921
  2. AMBRISENTAN [Suspect]
     Active Substance: AMBRISENTAN
     Indication: Pulmonary arterial hypertension

REACTIONS (2)
  - Maternal exposure during pregnancy [Not Recovered/Not Resolved]
  - Intentional dose omission [Not Recovered/Not Resolved]
